FAERS Safety Report 9924329 (Version 3)
Quarter: 2015Q1

REPORT INFORMATION
  Report Type: Report from Study
  Country: US (occurrence: US)
  Receive Date: 20140226
  Receipt Date: 20150220
  Transmission Date: 20150721
  Serious: Yes (Other)
  Sender: FDA-Public Use
  Company Number: US-ROCHE-1338493

PATIENT
  Sex: Female

DRUGS (9)
  1. LUCENTIS [Suspect]
     Active Substance: RANIBIZUMAB
     Route: 050
  2. PRAVASTATIN [Concomitant]
     Active Substance: PRAVASTATIN\PRAVASTATIN SODIUM
     Indication: BLOOD CHOLESTEROL
  3. FLEXERIL [Concomitant]
     Active Substance: CYCLOBENZAPRINE HYDROCHLORIDE
  4. AMBIEN CR [Concomitant]
     Active Substance: ZOLPIDEM TARTRATE
  5. PERCOCET [Concomitant]
     Active Substance: ACETAMINOPHEN\OXYCODONE HYDROCHLORIDE
     Indication: PAIN
  6. LUCENTIS [Suspect]
     Active Substance: RANIBIZUMAB
     Indication: AGE-RELATED MACULAR DEGENERATION
     Route: 050
     Dates: start: 20110614
  7. AVASTIN [Suspect]
     Active Substance: BEVACIZUMAB
     Indication: AGE-RELATED MACULAR DEGENERATION
     Route: 065
  8. DULOXETINE [Concomitant]
     Active Substance: DULOXETINE
     Indication: DEPRESSION
  9. ASPIRIN. [Concomitant]
     Active Substance: ASPIRIN
     Route: 065

REACTIONS (8)
  - Vision blurred [Unknown]
  - Detachment of retinal pigment epithelium [Unknown]
  - Eye irritation [Recovered/Resolved]
  - Eye pruritus [Unknown]
  - Macular degeneration [Unknown]
  - Eye irritation [Unknown]
  - Off label use [Unknown]
  - Lacrimation increased [Unknown]
